FAERS Safety Report 19578330 (Version 3)
Quarter: 2021Q3

REPORT INFORMATION
  Report Type: Spontaneous
  Country: EG (occurrence: EG)
  Receive Date: 20210719
  Receipt Date: 20210823
  Transmission Date: 20211014
  Serious: Yes (Death, Other)
  Sender: FDA-Public Use
  Company Number: EG-EMERGENT BIOSOLUTIONS CANADA INC.-21000104LT

PATIENT

DRUGS (1)
  1. BAT [Suspect]
     Active Substance: EQUINE BOTULINUM NEUROTOXIN A/B/C/D/E/F/G IMMUNE FAB2
     Indication: BOTULISM
     Dosage: 0.5 ML/MIN, SINGLE
     Dates: start: 20191010

REACTIONS (2)
  - Cardio-respiratory arrest [Fatal]
  - Lower respiratory tract infection [Fatal]

NARRATIVE: CASE EVENT DATE: 201910
